FAERS Safety Report 4720497-7 (Version None)
Quarter: 2005Q3

REPORT INFORMATION
  Report Type: 
  Country: None (occurrence: None)
  Receive Date: 20050721
  Receipt Date: 20050105
  Transmission Date: 20060218
  Serious: No
  Sender: FDA-Public Use
  Company Number: US-BRISTOL-MYERS SQUIBB COMPANY-12815072

PATIENT
  Age: 49 Year
  Sex: Male
  Weight: 123 kg

DRUGS (9)
  1. GLUCOVANCE [Suspect]
     Indication: DIABETES MELLITUS
     Dosage: DOSAGE FORM = 2.5MG/500MG TABLET
     Route: 048
     Dates: start: 20010601
  2. GEMFIBROZIL [Concomitant]
  3. INDOCIN [Concomitant]
  4. ZESTRIL [Concomitant]
  5. ALLOPURINOL [Concomitant]
  6. ATENOLOL [Concomitant]
  7. NEURONTIN [Concomitant]
  8. TESTOSTERONE [Concomitant]
  9. NASACORT [Concomitant]

REACTIONS (5)
  - BLOOD GLUCOSE INCREASED [None]
  - FATIGUE [None]
  - GOUT [None]
  - HYPOAESTHESIA [None]
  - POLLAKIURIA [None]
